FAERS Safety Report 9868749 (Version 1)
Quarter: 2014Q1

REPORT INFORMATION
  Report Type: Spontaneous
  Country: US (occurrence: US)
  Receive Date: 20140204
  Receipt Date: 20140204
  Transmission Date: 20141002
  Serious: Yes (Hospitalization, Other)
  Sender: FDA-Public Use
  Company Number: PHHY2014US013083

PATIENT
  Age: 44 Year
  Sex: Female

DRUGS (7)
  1. BACLOFEN INTRATHECAL [Suspect]
     Dosage: 459.46 UG, PER DAY
     Route: 037
  2. MORPHINE [Suspect]
     Dosage: 137.8 UG, PER DAY
     Route: 037
  3. MORPHINE [Suspect]
     Route: 042
  4. SUFENTANIL [Suspect]
     Dosage: 574.32 UG, PER DAY
     Route: 037
  5. FENTANYL [Suspect]
     Dosage: 75 UG, PER 72 HOURS
     Route: 062
  6. PERCOCET [Suspect]
     Route: 048
  7. CLONIDINE [Suspect]
     Dosage: 918.92 UG, PER DAY
     Route: 037

REACTIONS (5)
  - Infusion site mass [Unknown]
  - Sensory loss [Unknown]
  - Hypokinesia [Unknown]
  - Bradycardia [Unknown]
  - Asthenia [Recovering/Resolving]
